FAERS Safety Report 8157059-8 (Version None)
Quarter: 2012Q1

REPORT INFORMATION
  Report Type: 
  Country: None (occurrence: None)
  Receive Date: 20120208
  Receipt Date: 20120130
  Transmission Date: 20120608
  Serious: Yes (Other)
  Sender: FDA-Public Use
  Company Number: 2011028857

PATIENT
  Age: 50 Year
  Sex: Female
  Weight: 79.3795 kg

DRUGS (39)
  1. HIZENTRA [Suspect]
  2. ACETAMINOPHEN [Concomitant]
  3. DOXYCYCLINE [Concomitant]
  4. ZOLOFT [Concomitant]
  5. BUMEX [Concomitant]
  6. HIZENTRA [Suspect]
  7. REGLAN [Concomitant]
  8. HYDROCHLOROTHIAZIDE [Concomitant]
  9. THEOPHYLLINE [Concomitant]
  10. HIZENTRA [Suspect]
     Indication: IMMUNODEFICIENCY COMMON VARIABLE
     Dosage: SEE IMAGE
     Route: 058
     Dates: start: 20110105
  11. BUDESONIDE [Concomitant]
  12. AZITHROMYCIN [Concomitant]
  13. ADVAIR DISKUS 100/50 [Concomitant]
  14. REQUIP (ROPINIORLE HYDROCHLORIDE) [Concomitant]
  15. BACTRIM [Concomitant]
  16. PREDNISONE TAB [Concomitant]
  17. PROTONIX [Concomitant]
  18. LASIX [Concomitant]
  19. TIZANIDINE HCL [Concomitant]
  20. HIZENTRA [Suspect]
  21. HIZENTRA [Suspect]
  22. ALLEGRA [Concomitant]
  23. ACTONEL [Concomitant]
  24. NAPROXEN [Concomitant]
  25. CALCIUM + D (CALCIUM D3) [Concomitant]
  26. HIZENTRA [Suspect]
  27. HIZENTRA [Suspect]
  28. DUONEB [Concomitant]
  29. AMITRIPYTLINE (AMITRIPTYLINE) [Concomitant]
  30. TRAZODONE HCL [Concomitant]
  31. VERAPAMIL [Concomitant]
  32. HIZENTRA [Suspect]
  33. SPIRIVA [Concomitant]
  34. CYMBALTA [Concomitant]
  35. AMBIEN [Concomitant]
  36. ALDACTONE [Concomitant]
  37. VIVELLE-DOT [Concomitant]
  38. POTASSIUM CHLORIDE [Concomitant]
  39. OXYGEN (OXYGEN) [Concomitant]

REACTIONS (4)
  - HEADACHE [None]
  - HERPES ZOSTER [None]
  - LOWER RESPIRATORY TRACT INFECTION VIRAL [None]
  - HERPES VIRUS INFECTION [None]
